FAERS Safety Report 20735106 (Version 3)
Quarter: 2024Q1

REPORT INFORMATION
  Report Type: Spontaneous
  Country: US (occurrence: US)
  Receive Date: 20220421
  Receipt Date: 20240320
  Transmission Date: 20240409
  Serious: Yes (Other)
  Sender: FDA-Public Use
  Company Number: US-PFIZER INC-202200570982

PATIENT
  Age: 78 Year
  Sex: Female

DRUGS (2)
  1. EUCRISA [Suspect]
     Active Substance: CRISABOROLE
     Dosage: APPLY TO AFFECTED AREA OF THE BODY TWICE DAILY
     Route: 061
  2. EUCRISA [Suspect]
     Active Substance: CRISABOROLE
     Dosage: APPLY TO AFFECTED AREA OF THE BODY PRN (AS NEEDED) MAY USE BID DAILY(TWICE A DAY)
     Route: 061

REACTIONS (1)
  - Diabetes mellitus [Unknown]
